FAERS Safety Report 22180834 (Version 1)
Quarter: 2023Q2

REPORT INFORMATION
  Report Type: Report from Study
  Country: FR (occurrence: FR)
  Receive Date: 20230406
  Receipt Date: 20230406
  Transmission Date: 20230721
  Serious: Yes (Hospitalization)
  Sender: FDA-Public Use
  Company Number: FR-002147023-NVSC2023FR042502

PATIENT
  Age: 1 Year
  Sex: Male

DRUGS (1)
  1. OMNITROPE [Suspect]
     Active Substance: SOMATROPIN
     Indication: Product used for unknown indication
     Dosage: 0.150 MG, QD
     Route: 065
     Dates: start: 20230214

REACTIONS (6)
  - Ear infection [Recovering/Resolving]
  - Decreased appetite [Unknown]
  - Thirst [Unknown]
  - Depressed mood [Unknown]
  - Hypoglycaemia [Unknown]
  - Asthenia [Unknown]
